FAERS Safety Report 19872958 (Version 1)
Quarter: 2021Q3

REPORT INFORMATION
  Report Type: Spontaneous
  Country: DE (occurrence: DE)
  Receive Date: 20210922
  Receipt Date: 20210922
  Transmission Date: 20211014
  Serious: Yes (Death, Hospitalization, Other)
  Sender: FDA-Public Use
  Company Number: DE-ASTRAZENECA-2021A735124

PATIENT
  Age: 70 Year
  Sex: Female
  Weight: 81 kg

DRUGS (1)
  1. FULVESTRANT. [Suspect]
     Active Substance: FULVESTRANT
     Indication: BREAST CANCER METASTATIC
     Route: 030
     Dates: start: 202002

REACTIONS (9)
  - Myelodysplastic syndrome [Unknown]
  - Ascites [Unknown]
  - Haematochezia [Unknown]
  - Oedema peripheral [Unknown]
  - Chromaturia [Unknown]
  - COVID-19 pneumonia [Fatal]
  - Dyspnoea at rest [Unknown]
  - Immune thrombocytopenia [Unknown]
  - Tumour marker increased [Unknown]

NARRATIVE: CASE EVENT DATE: 202101
